FAERS Safety Report 6041954-X (Version None)
Quarter: 2009Q1

REPORT INFORMATION
  Report Type: 
  Country: None (occurrence: None)
  Receive Date: 20090116
  Receipt Date: 20090107
  Transmission Date: 20090719
  Serious: Yes (Hospitalization)
  Sender: FDA-Public Use
  Company Number: JP-PFIZER INC-2008072808

PATIENT

DRUGS (2)
  1. LIPITOR [Suspect]
     Indication: HYPERLIPIDAEMIA
     Route: 048
     Dates: start: 20080421, end: 20080702
  2. MEVALOTIN [Concomitant]
     Dates: start: 20070101, end: 20080401

REACTIONS (3)
  - INFECTION [None]
  - RENAL IMPAIRMENT [None]
  - RHABDOMYOLYSIS [None]
